FAERS Safety Report 9657667 (Version 2)
Quarter: 2013Q4

REPORT INFORMATION
  Report Type: Spontaneous
  Country: US (occurrence: US)
  Receive Date: 20131030
  Receipt Date: 20131113
  Transmission Date: 20140711
  Serious: Yes (Death)
  Sender: FDA-Public Use
  Company Number: US-BRISTOL-MYERS SQUIBB COMPANY-19621721

PATIENT
  Age: 54 Year
  Sex: Female

DRUGS (2)
  1. SPRYCEL [Suspect]
     Indication: ACUTE LYMPHOCYTIC LEUKAEMIA
     Dosage: TABS
     Route: 048
  2. SPRYCEL [Suspect]
     Indication: MULTIPLE SCLEROSIS
     Dosage: TABS
     Route: 048

REACTIONS (1)
  - Malignant neoplasm progression [Fatal]
